FAERS Safety Report 23665859 (Version 2)
Quarter: 2024Q2

REPORT INFORMATION
  Report Type: Spontaneous
  Country: AT (occurrence: AT)
  Receive Date: 20240323
  Receipt Date: 20240411
  Transmission Date: 20240716
  Serious: Yes (Hospitalization, Other)
  Sender: FDA-Public Use
  Company Number: None

PATIENT
  Age: 39 Year
  Sex: Female

DRUGS (14)
  1. CYCLOPHOSPHAMIDE [Suspect]
     Active Substance: CYCLOPHOSPHAMIDE
     Indication: Breast neoplasm
     Dosage: 10005. MG, CYCLOPHOSPHAMIDE SANDOZ PLV F. INF.LSG (600MG/M2) IN NACL 0.9% 500 ML OVER 60 MIN
     Route: 065
     Dates: start: 20231213, end: 20231213
  2. CYCLOPHOSPHAMIDE [Suspect]
     Active Substance: CYCLOPHOSPHAMIDE
     Dosage: 10005. MG, CYCLOPHOSPHAMIDE SANDOZ PLV F. INF.LSG (600MG/M2) IN NACL 0.9% 500 ML OVER 60 MIN
     Route: 065
     Dates: start: 20240103, end: 20240103
  3. CYCLOPHOSPHAMIDE [Suspect]
     Active Substance: CYCLOPHOSPHAMIDE
     Dosage: 10005. MG, CYCLOPHOSPHAMIDE SANDOZ PLV F. INF.LSG (600MG/M2) IN NACL 0.9% 500 ML OVER 60 MIN
     Route: 065
     Dates: start: 20240131, end: 20240131
  4. ZOFRAN [Suspect]
     Active Substance: ONDANSETRON HYDROCHLORIDE
     Indication: Vomiting
     Dosage: UNK, ADDITIONAL THERAPY WITH EMESIS DUE TO BREAST CANCER
     Route: 065
  5. EPIRUBICIN [Suspect]
     Active Substance: EPIRUBICIN
     Indication: Breast neoplasm
     Dosage: 150.82 MG, EPIRUBICIN ACCORD LSG (90MG/M2) AD NACL 0.9% 250ML OVER 10 MIN
     Route: 065
     Dates: start: 20231213, end: 20231213
  6. EPIRUBICIN [Suspect]
     Active Substance: EPIRUBICIN
     Dosage: 150.82 MG, EPIRUBICIN ACCORD LSG (90MG/M2) AD NACL 0.9% 250ML OVER 10 MIN
     Route: 065
     Dates: start: 20240103, end: 20240103
  7. EPIRUBICIN [Suspect]
     Active Substance: EPIRUBICIN
     Dosage: 150.82 MG, EPIRUBICIN ACCORD LSG (90MG/M2) AD NACL 0.9% 250ML OVER 10 MIN
     Route: 065
     Dates: start: 20240131, end: 20240131
  8. HERZUMA [Suspect]
     Active Substance: TRASTUZUMAB-PKRB
     Indication: Breast neoplasm
     Dosage: 354 MG
     Route: 065
     Dates: start: 20231213, end: 20231213
  9. HERZUMA [Suspect]
     Active Substance: TRASTUZUMAB-PKRB
     Dosage: 354 MG
     Route: 065
     Dates: start: 20240103, end: 20240103
  10. HERZUMA [Suspect]
     Active Substance: TRASTUZUMAB-PKRB
     Dosage: 354 MG
     Route: 065
     Dates: start: 20240131, end: 20240131
  11. HERZUMA [Suspect]
     Active Substance: TRASTUZUMAB-PKRB
     Dosage: 354 MG
     Route: 065
     Dates: start: 20240229, end: 20240229
  12. PERJETA [Suspect]
     Active Substance: PERTUZUMAB
     Indication: Breast neoplasm
     Dosage: 420 MG, PERJETA SOLUTION FOR INFUSION ISG IN NACL 0.9% 250ML OVER 30 MIN
     Route: 065
     Dates: start: 20240103, end: 20240103
  13. PERJETA [Suspect]
     Active Substance: PERTUZUMAB
     Dosage: 420 MG, PERJETA SOLUTION FOR INFUSION ISG IN NACL 0.9% 250ML OVER 30 MIN
     Route: 065
     Dates: start: 20240131, end: 20240131
  14. PERJETA [Suspect]
     Active Substance: PERTUZUMAB
     Dosage: 420 MG, PERJETA SOLUTION FOR INFUSION ISG IN NACL 0.9% 250ML OVER 30 MIN
     Route: 065
     Dates: start: 20240229, end: 20240229

REACTIONS (7)
  - Serum ferritin increased [Recovering/Resolving]
  - Liver function test abnormal [Recovering/Resolving]
  - Thrombocytopenia [Recovering/Resolving]
  - Asthenia [Recovered/Resolved]
  - Diarrhoea [Recovered/Resolved]
  - Blood lactate dehydrogenase increased [Recovering/Resolving]
  - General physical health deterioration [Recovered/Resolved]

NARRATIVE: CASE EVENT DATE: 20240131
